FAERS Safety Report 20579160 (Version 1)
Quarter: 2022Q1

REPORT INFORMATION
  Report Type: Spontaneous
  Country: US (occurrence: None)
  Receive Date: 20220310
  Receipt Date: 20220310
  Transmission Date: 20220423
  Serious: Yes (Other)
  Sender: FDA-Public Use
  Company Number: None

PATIENT
  Age: 75 Year
  Sex: Male

DRUGS (2)
  1. PHOSPHA 250 NEUTRAL [Suspect]
     Active Substance: POTASSIUM PHOSPHATE, MONOBASIC\SODIUM PHOSPHATE, DIBASIC, ANHYDROUS\SODIUM PHOSPHATE, MONOBASIC, MON
     Indication: Transplant
     Dosage: OTHER STRENGTH : 250;?FREQUENCY : TWICE A DAY;?
     Route: 048
     Dates: start: 20190418
  2. TACROLIMUS [Suspect]
     Active Substance: TACROLIMUS
     Indication: Transplant
     Dosage: FREQUENCY : DAILY;?
     Route: 048
     Dates: start: 20170124

REACTIONS (1)
  - Skin cancer [None]

NARRATIVE: CASE EVENT DATE: 20220310
